FAERS Safety Report 22317533 (Version 1)
Quarter: 2023Q2

REPORT INFORMATION
  Report Type: Report from Study
  Country: CA (occurrence: CA)
  Receive Date: 20230515
  Receipt Date: 20230515
  Transmission Date: 20230722
  Serious: Yes (Other)
  Sender: FDA-Public Use
  Company Number: CA-002147023-NVSC2023CA107402

PATIENT
  Age: 39 Year
  Sex: Female

DRUGS (1)
  1. HYRIMOZ [Suspect]
     Active Substance: ADALIMUMAB-ADAZ
     Indication: Crohn^s disease
     Dosage: 40 MG
     Route: 058
     Dates: start: 20220517

REACTIONS (5)
  - Juvenile idiopathic arthritis [Unknown]
  - Arthralgia [Unknown]
  - Pain [Unknown]
  - Psoriasis [Unknown]
  - Abdominal pain [Unknown]
